FAERS Safety Report 25269817 (Version 2)
Quarter: 2025Q3

REPORT INFORMATION
  Report Type: Report from Study
  Country: US (occurrence: US)
  Receive Date: 20250505
  Receipt Date: 20250730
  Transmission Date: 20251020
  Serious: Yes (Other)
  Sender: UCB
  Company Number: US-UCBSA-2025025766

PATIENT
  Sex: Male

DRUGS (1)
  1. BIMEKIZUMAB [Suspect]
     Active Substance: BIMEKIZUMAB
     Indication: Psoriatic arthropathy
     Dosage: 160 MILLIGRAM, EV 4 WEEKS
     Route: 058
     Dates: start: 20250126

REACTIONS (3)
  - Psoriatic arthropathy [Recovering/Resolving]
  - Stress [Recovering/Resolving]
  - Bone non-union [Not Recovered/Not Resolved]

NARRATIVE: CASE EVENT DATE: 20250101
